FAERS Safety Report 10052386 (Version 2)
Quarter: 2014Q2

REPORT INFORMATION
  Report Type: Spontaneous
  Country: IT (occurrence: IT)
  Receive Date: 20140402
  Receipt Date: 20140516
  Transmission Date: 20141212
  Serious: Yes (Other)
  Sender: FDA-Public Use
  Company Number: IT-ROCHE-1370822

PATIENT
  Age: 37 Year
  Sex: Male
  Weight: 78 kg

DRUGS (3)
  1. VALIUM [Suspect]
     Indication: PRODUCT USED FOR UNKNOWN INDICATION
     Route: 048
     Dates: start: 20140307, end: 20140307
  2. HALDOL [Suspect]
     Indication: PRODUCT USED FOR UNKNOWN INDICATION
     Dosage: 2 MG /ML ORAL GTT
     Route: 065
     Dates: start: 20140307, end: 20140307
  3. SULFASALAZINE [Suspect]
     Indication: PRODUCT USED FOR UNKNOWN INDICATION
     Dosage: GTT ORAL 1 MG /ML
     Route: 048
     Dates: start: 20140307, end: 20140307

REACTIONS (2)
  - Drug abuse [Unknown]
  - Psychomotor retardation [Unknown]
